FAERS Safety Report 9293395 (Version 1)
Quarter: 2013Q2

REPORT INFORMATION
  Report Type: Spontaneous
  Country: US (occurrence: US)
  Receive Date: 20130516
  Receipt Date: 20130516
  Transmission Date: 20140414
  Serious: No
  Sender: FDA-Public Use
  Company Number: US-009507513-1305USA004993

PATIENT
  Age: 66 Year
  Sex: Female

DRUGS (3)
  1. AZASITE [Suspect]
     Dosage: 1 DROP INTO EACH EYE AT BEDTIME FOR 1 WEEK OUT OF EVERY MONTH
     Route: 047
     Dates: start: 201111, end: 20130430
  2. ZIOPTAN [Concomitant]
  3. BRIMONIDINE TARTRATE [Concomitant]

REACTIONS (5)
  - Burning sensation [Recovered/Resolved]
  - Inappropriate schedule of drug administration [Unknown]
  - Incorrect dose administered [Unknown]
  - Drug dose omission [Unknown]
  - Incorrect drug administration duration [Unknown]
